FAERS Safety Report 12558433 (Version 2)
Quarter: 2016Q4

REPORT INFORMATION
  Report Type: Spontaneous
  Country: US (occurrence: US)
  Receive Date: 20160714
  Receipt Date: 20161220
  Transmission Date: 20170207
  Serious: No
  Sender: FDA-Public Use
  Company Number: US-ELI_LILLY_AND_COMPANY-US201607004551

PATIENT
  Sex: Male

DRUGS (5)
  1. HUMALOG [Suspect]
     Active Substance: INSULIN LISPRO
     Indication: DIABETES MELLITUS
     Dosage: 3 U, QD
     Route: 065
     Dates: start: 2009
  2. HUMALOG [Suspect]
     Active Substance: INSULIN LISPRO
     Dosage: 3 U, QD
     Route: 065
     Dates: start: 2009
  3. HUMALOG [Suspect]
     Active Substance: INSULIN LISPRO
     Dosage: 3 U, QD
     Route: 065
     Dates: start: 2009
  4. LANTUS [Concomitant]
     Active Substance: INSULIN GLARGINE
  5. HUMALOG [Suspect]
     Active Substance: INSULIN LISPRO
     Dosage: 3 U, QD
     Route: 065
     Dates: start: 2009

REACTIONS (2)
  - Incorrect dose administered [Unknown]
  - Blood glucose increased [Unknown]
